FAERS Safety Report 6910824-4 (Version None)
Quarter: 2010Q3

REPORT INFORMATION
  Report Type: 
  Country: None (occurrence: None)
  Receive Date: 20100806
  Receipt Date: 20100803
  Transmission Date: 20110219
  Serious: Yes (Death)
  Sender: FDA-Public Use
  Company Number: US-JNJFOC-20100505370

PATIENT
  Age: 11 Month

DRUGS (2)
  1. CONCENTRATED TYLENOL INFANT DROPS [Suspect]
     Route: 048
  2. CONCENTRATED TYLENOL INFANT DROPS [Suspect]
     Indication: PRODUCT USED FOR UNKNOWN INDICATION
     Route: 048

REACTIONS (2)
  - DEATH [None]
  - PRODUCT QUALITY ISSUE [None]
